FAERS Safety Report 17012965 (Version 1)
Quarter: 2019Q4

REPORT INFORMATION
  Report Type: Spontaneous
  Country: US (occurrence: US)
  Receive Date: 20191001
  Receipt Date: 20191001
  Transmission Date: 20200122
  Serious: No
  Sender: FDA-Public Use
  Company Number: None

PATIENT
  Age: 67 Year
  Sex: Female

DRUGS (1)
  1. COPAXONE [Suspect]
     Active Substance: GLATIRAMER ACETATE
     Indication: MULTIPLE SCLEROSIS
     Route: 058
     Dates: start: 20160330

REACTIONS (5)
  - Hyperhidrosis [None]
  - Palpitations [None]
  - Dizziness [None]
  - Vomiting [None]
  - Injection related reaction [None]

NARRATIVE: CASE EVENT DATE: 20190905
